FAERS Safety Report 25216838 (Version 1)
Quarter: 2025Q2

REPORT INFORMATION
  Report Type: Spontaneous
  Country: FR (occurrence: FR)
  Receive Date: 20250419
  Receipt Date: 20250419
  Transmission Date: 20250717
  Serious: Yes (Life-Threatening, Other)
  Sender: AUROBINDO
  Company Number: FR-AFSSAPS-LM2025000250

PATIENT
  Age: 28 Year
  Sex: Female
  Weight: 89 kg

DRUGS (4)
  1. LAMOTRIGINE [Suspect]
     Active Substance: LAMOTRIGINE
     Indication: Affective disorder
     Dosage: 25 MILLIGRAM, ONCE A DAY
     Route: 048
     Dates: start: 20250221, end: 20250227
  2. LAMOTRIGINE [Suspect]
     Active Substance: LAMOTRIGINE
     Dosage: 50 MILLIGRAM, ONCE A DAY
     Route: 048
     Dates: start: 20250228, end: 20250306
  3. LAMOTRIGINE [Suspect]
     Active Substance: LAMOTRIGINE
     Dosage: 75 MILLIGRAM, ONCE A DAY
     Route: 048
     Dates: start: 20250307, end: 20250318
  4. FLUOXETINE [Suspect]
     Active Substance: FLUOXETINE HYDROCHLORIDE
     Indication: Depression
     Dosage: 20 MILLIGRAM, ONCE A DAY
     Route: 048
     Dates: start: 20250221, end: 20250319

REACTIONS (2)
  - Toxic epidermal necrolysis [Recovering/Resolving]
  - Stevens-Johnson syndrome [Recovering/Resolving]

NARRATIVE: CASE EVENT DATE: 20250310
